FAERS Safety Report 10654494 (Version 1)
Quarter: 2014Q4

REPORT INFORMATION
  Report Type: Other
  Country: GB (occurrence: GB)
  Receive Date: 20141216
  Receipt Date: 20141216
  Transmission Date: 20150529
  Serious: Yes (Other)
  Sender: FDA-Public Use
  Company Number: GB-MYLANLABS-2014M1013101

PATIENT

DRUGS (14)
  1. DROPODEX [Concomitant]
     Dates: start: 20140815
  2. PREDNISOLONE. [Concomitant]
     Active Substance: PREDNISOLONE
     Dates: start: 20140926, end: 20141026
  3. CLOBETASOL PROPIONATE. [Concomitant]
     Active Substance: CLOBETASOL PROPIONATE
     Dates: start: 20140815, end: 20141024
  4. EPADERM [Concomitant]
     Dates: start: 20141107
  5. BETAMETHASONE VALERATE. [Concomitant]
     Active Substance: BETAMETHASONE VALERATE
     Dates: start: 20140815, end: 20140912
  6. FOLIC ACID. [Concomitant]
     Active Substance: FOLIC ACID
     Dates: start: 20140815
  7. OMEPRAZOLE. [Concomitant]
     Active Substance: OMEPRAZOLE
     Dates: start: 20140926
  8. METHOTREXATE [Suspect]
     Active Substance: METHOTREXATE
     Dates: start: 20140815
  9. FLUOROMETHOLONE. [Concomitant]
     Active Substance: FLUOROMETHOLONE
     Dates: start: 20141107, end: 20141114
  10. HYLO TEAR [Concomitant]
     Dates: start: 20140915, end: 20141013
  11. SALBUTAMOL [Concomitant]
     Active Substance: ALBUTEROL
     Dates: start: 20140915
  12. BUDESONIDE. [Concomitant]
     Active Substance: BUDESONIDE
     Dates: start: 20140926, end: 20141024
  13. DERMOL [Concomitant]
     Active Substance: BENZALKONIUM CHLORIDE\CHLORHEXIDINE HYDROCHLORIDE\ISOPROPYL MYRISTATE\PARAFFIN
     Dates: start: 20141107
  14. INDAPAMIDE. [Concomitant]
     Active Substance: INDAPAMIDE
     Dates: start: 20140926

REACTIONS (1)
  - Neuropathy peripheral [Unknown]

NARRATIVE: CASE EVENT DATE: 20141124
